FAERS Safety Report 20603222 (Version 2)
Quarter: 2022Q2

REPORT INFORMATION
  Report Type: Report from Study
  Country: ES (occurrence: ES)
  Receive Date: 20220316
  Receipt Date: 20220414
  Transmission Date: 20220721
  Serious: Yes (Hospitalization)
  Sender: FDA-Public Use
  Company Number: ES-NOVARTISPH-NVSC2021ES219375

PATIENT
  Age: 75 Year
  Sex: Male
  Weight: 54 kg

DRUGS (14)
  1. ASCIMINIB [Suspect]
     Active Substance: ASCIMINIB
     Indication: Chronic myeloid leukaemia
     Dosage: 80 MG, BID
     Route: 048
     Dates: start: 20160929, end: 20210923
  2. ASCIMINIB [Suspect]
     Active Substance: ASCIMINIB
     Dosage: 40 MG, BID
     Route: 048
     Dates: start: 20211015, end: 20211122
  3. ALLOPURINOL [Concomitant]
     Active Substance: ALLOPURINOL
     Indication: Hyperuricaemia
     Dosage: 100 MG, Q24H
     Route: 048
     Dates: start: 20200601
  4. CLOPIDOGREL [Concomitant]
     Active Substance: CLOPIDOGREL BISULFATE
     Indication: Thrombosis prophylaxis
     Dosage: 75 MG, Q24H
     Route: 048
     Dates: start: 20200526
  5. ASPIRIN [Concomitant]
     Active Substance: ASPIRIN
     Indication: Thrombosis prophylaxis
     Dosage: 100 MG, Q24H
     Route: 048
     Dates: start: 20160526
  6. FERROUS GLUCONATE [Concomitant]
     Active Substance: FERROUS GLUCONATE
     Indication: Iron deficiency
     Dosage: 100 MG, Q24H
     Route: 048
     Dates: start: 20150415
  7. ATORVASTATIN [Concomitant]
     Active Substance: ATORVASTATIN
     Indication: Prophylaxis
     Dosage: 20 MG, Q24H
     Route: 048
     Dates: start: 20131009
  8. DUTASTERIDE\TAMSULOSIN [Concomitant]
     Active Substance: DUTASTERIDE\TAMSULOSIN
     Indication: Renal disorder
     Dosage: 04/05 MG/ Q24 H
     Route: 048
     Dates: start: 20150325
  9. FOLIC ACID [Concomitant]
     Active Substance: FOLIC ACID
     Indication: Anaemia prophylaxis
     Dosage: 5 MG, TIW
     Route: 065
     Dates: start: 20160707
  10. MANIDIPINE [Concomitant]
     Active Substance: MANIDIPINE
     Indication: Prophylaxis
     Dosage: 10 MG, Q12H
     Route: 048
     Dates: start: 20210412
  11. ARANESP [Concomitant]
     Active Substance: DARBEPOETIN ALFA
     Indication: Anaemia prophylaxis
     Dosage: 150 UG, 1 WEEK
     Route: 065
     Dates: start: 20210902
  12. VELPHORO [Concomitant]
     Active Substance: SUCROFERRIC OXYHYDROXIDE
     Indication: Prophylaxis
     Dosage: 500 MG, Q24H
     Route: 065
     Dates: start: 20210413
  13. OMEPRAZOLE [Concomitant]
     Active Substance: OMEPRAZOLE
     Indication: Prophylaxis
     Dosage: 20 MG, Q24H
     Route: 065
     Dates: start: 20181003
  14. AMLODIPINE [Concomitant]
     Active Substance: AMLODIPINE BESYLATE
     Indication: Prophylaxis
     Dosage: 5 MGR/24 H
     Route: 048
     Dates: start: 20210924

REACTIONS (3)
  - Chronic kidney disease [Recovered/Resolved]
  - Cardiac failure [Recovered/Resolved]
  - Mitral valve incompetence [Recovered/Resolved]

NARRATIVE: CASE EVENT DATE: 20210923
